FAERS Safety Report 11324716 (Version 4)
Quarter: 2015Q4

REPORT INFORMATION
  Report Type: Spontaneous
  Country: JP (occurrence: JP)
  Receive Date: 20150730
  Receipt Date: 20151001
  Transmission Date: 20160304
  Serious: Yes (Death)
  Sender: FDA-Public Use
  Company Number: JP-MALLINCKRODT-T201503611

PATIENT
  Age: 45 Year
  Sex: Female
  Weight: 41 kg

DRUGS (22)
  1. METHADONE [Suspect]
     Active Substance: METHADONE HYDROCHLORIDE
     Dosage: 15 MG, (45 MG DAILY DOSE)
     Route: 048
     Dates: start: 20150416, end: 20150430
  2. NAIXAN [Concomitant]
     Active Substance: NAPROXEN SODIUM
     Dosage: 600 MG
     Route: 048
     Dates: start: 20140526, end: 20150506
  3. FERROUS SULFATE [Concomitant]
     Active Substance: FERROUS SULFATE\FERROUS SULFATE, DRIED
     Dosage: 100 MG
     Route: 048
     Dates: start: 20140714, end: 20150506
  4. CAFFEINE. [Concomitant]
     Active Substance: CAFFEINE
     Dosage: 150 MG
     Route: 048
     Dates: start: 20140609, end: 20150212
  5. CAFFEINE. [Concomitant]
     Active Substance: CAFFEINE
     Dosage: 200 MG
     Route: 048
     Dates: start: 20150213, end: 20150218
  6. WYPAX [Concomitant]
     Active Substance: LORAZEPAM
     Dosage: 0.5 MG
     Route: 048
     Dates: start: 20140910, end: 20150430
  7. METHADONE [Suspect]
     Active Substance: METHADONE HYDROCHLORIDE
     Dosage: 20 MG, (60 MG DAILY DOSE)
     Route: 048
     Dates: start: 20150501, end: 20150507
  8. METHADONE [Suspect]
     Active Substance: METHADONE HYDROCHLORIDE
     Dosage: 10 MG, (30 MG DAILY DOSE)
     Route: 048
     Dates: start: 20150213, end: 20150415
  9. LANSOPRAZOLE. [Concomitant]
     Active Substance: LANSOPRAZOLE
     Dosage: 30 MG
     Route: 048
     Dates: start: 20140822, end: 20150506
  10. OMEPRAZOLE. [Concomitant]
     Active Substance: OMEPRAZOLE
     Dosage: 40 MG
     Route: 051
     Dates: start: 20150510, end: 20150510
  11. METHADONE [Suspect]
     Active Substance: METHADONE HYDROCHLORIDE
     Indication: CANCER PAIN
     Dosage: 5 MG, (15 MG DAILY DOSE)
     Route: 048
     Dates: start: 20150206, end: 20150212
  12. LYRICA [Concomitant]
     Active Substance: PREGABALIN
     Dosage: 75 MG
     Route: 048
     Dates: start: 20140430, end: 20150506
  13. WYPAX [Concomitant]
     Active Substance: LORAZEPAM
     Dosage: 1 MG
     Route: 048
     Dates: start: 20150501, end: 20150506
  14. MORPHINE HCL [Concomitant]
     Active Substance: MORPHINE HYDROCHLORIDE
     Dosage: 115.2 MG
     Route: 051
     Dates: start: 20150508, end: 20150511
  15. OPSO [Concomitant]
     Active Substance: MORPHINE HYDROCHLORIDE
     Dosage: 30 - 40 MG, P.R.N.
     Route: 048
     Dates: start: 20150123
  16. RENIVACE [Concomitant]
     Active Substance: ENALAPRIL
     Dosage: 5 MG
     Route: 048
     Dates: start: 20141024, end: 20150506
  17. DENOSUMAB [Concomitant]
     Active Substance: DENOSUMAB
     Dosage: 120 MG
     Route: 058
     Dates: start: 20150306, end: 20150501
  18. METASTRON [Concomitant]
     Active Substance: STRONTIUM CHLORIDE SR-89
     Dosage: 82 MBQ
     Route: 051
     Dates: start: 20150326, end: 20150326
  19. PROMAC [Concomitant]
     Active Substance: NITROFURANTOIN
     Dosage: 150 MG
     Route: 048
     Dates: start: 20140822, end: 20150506
  20. P GUARD [Concomitant]
     Active Substance: MORPHINE SULFATE
     Dosage: 100 MG
     Route: 048
     Dates: start: 20140901, end: 20150213
  21. CAFFEINE. [Concomitant]
     Active Substance: CAFFEINE
     Dosage: 400 MG
     Route: 048
     Dates: start: 20150219, end: 20150506
  22. MIDAZOLAM [Concomitant]
     Active Substance: MIDAZOLAM\MIDAZOLAM HYDROCHLORIDE
     Dosage: 25 MG
     Route: 051
     Dates: start: 20150509, end: 20150509

REACTIONS (3)
  - Dyspnoea [Recovering/Resolving]
  - Somnolence [Recovering/Resolving]
  - Malignant neoplasm progression [Fatal]

NARRATIVE: CASE EVENT DATE: 20150219
